FAERS Safety Report 12125132 (Version 1)
Quarter: 2016Q1

REPORT INFORMATION
  Report Type: Spontaneous
  Country: US (occurrence: None)
  Receive Date: 20160226
  Receipt Date: 20160226
  Transmission Date: 20160526
  Serious: Yes (Hospitalization)
  Sender: FDA-Public Use
  Company Number: None

PATIENT
  Age: 72 Year
  Sex: Male

DRUGS (10)
  1. AFINITOR [Suspect]
     Active Substance: EVEROLIMUS
     Indication: HEPATIC CANCER
     Route: 048
     Dates: start: 20151210
  2. METOPROLOL. [Concomitant]
     Active Substance: METOPROLOL
  3. NORTRIPTYLIN [Concomitant]
     Active Substance: NORTRIPTYLINE
  4. BD PEN NEEDLE [Concomitant]
  5. DIAZEPAM. [Concomitant]
     Active Substance: DIAZEPAM
  6. ONETOUCH [Concomitant]
  7. BUPRON HCL [Concomitant]
  8. LANTUS [Concomitant]
     Active Substance: INSULIN GLARGINE
  9. GLIPIZIDE. [Concomitant]
     Active Substance: GLIPIZIDE
  10. ZOLPIDEM [Concomitant]
     Active Substance: ZOLPIDEM\ZOLPIDEM TARTRATE

REACTIONS (3)
  - Pneumonia [None]
  - Skin ulcer [None]
  - Therapy cessation [None]

NARRATIVE: CASE EVENT DATE: 20160204
